FAERS Safety Report 6442877-4 (Version None)
Quarter: 2009Q4

REPORT INFORMATION
  Report Type: 
  Country: None (occurrence: None)
  Receive Date: 20091117
  Receipt Date: 20091106
  Transmission Date: 20100525
  Serious: Yes (Hospitalization)
  Sender: FDA-Public Use
  Company Number: CN-BRISTOL-MYERS SQUIBB COMPANY-14846448

PATIENT
  Age: 60 Year
  Sex: Male

DRUGS (2)
  1. ERBITUX [Suspect]
     Indication: GASTRIC CANCER
     Dosage: 8 WEEKS FOR EACH CYCLE,1ST CYCLE:14APR08-JUL08(3 MONTHS),2ND(250MG/M2):SEP-NOV08,3RD:OCT09-OCT2009
     Route: 042
     Dates: start: 20080414
  2. IRINOTECAN HCL [Concomitant]
     Indication: GASTRIC CANCER
     Route: 042

REACTIONS (3)
  - DIPLOPIA [None]
  - GAIT DISTURBANCE [None]
  - LEUKODYSTROPHY [None]
